FAERS Safety Report 8868603 (Version 1)
Quarter: 2012Q4

REPORT INFORMATION
  Report Type: 
  Country: US (occurrence: US)
  Receive Date: 20121026
  Receipt Date: 20121026
  Transmission Date: 20130627
  Serious: No
  Sender: FDA-Public Use
  Company Number: US-AMGEN-USASP2012046199

PATIENT
  Age: 60 Year
  Sex: Male

DRUGS (8)
  1. ENBREL [Suspect]
     Indication: PRODUCT USED FOR UNKNOWN INDICATION
     Dosage: 50 mg, qwk
     Route: 058
  2. TRAMADOL HCL [Concomitant]
     Dosage: 50 mg, UNK
  3. LISINOPRIL [Concomitant]
     Dosage: 40 mg, UNK
  4. SIMVASTATIN [Concomitant]
     Dosage: 80 mg, UNK
  5. HYDROXYCHLOROQUINE [Concomitant]
     Dosage: HYDROXYCHLOR Tab 200mg
  6. METOPROLOL [Concomitant]
     Dosage: 500 mg, UNK
  7. PRILOSEC                           /00661201/ [Concomitant]
     Dosage: 10 mg, UNK
  8. ASPIRIN [Concomitant]
     Dosage: 81 mg, UNK

REACTIONS (1)
  - Mouth ulceration [Unknown]
